FAERS Safety Report 6241612-2 (Version None)
Quarter: 2009Q2

REPORT INFORMATION
  Report Type: 
  Country: None (occurrence: None)
  Receive Date: 20090623
  Receipt Date: 20050425
  Transmission Date: 20091009
  Serious: Yes (Hospitalization, Other)
  Sender: FDA-Public Use
  Company Number: DE-ROCHE-402372

PATIENT
  Sex: Male
  Weight: 71.5 kg

DRUGS (45)
  1. DACLIZUMAB [Suspect]
     Route: 042
     Dates: start: 20040517, end: 20040517
  2. DACLIZUMAB [Suspect]
     Route: 042
     Dates: start: 20040602, end: 20040712
  3. MYCOPHENOLATE MOFETIL [Suspect]
     Dosage: DRUG: MMF
     Route: 048
     Dates: start: 20040517
  4. MYCOPHENOLATE MOFETIL [Suspect]
     Route: 048
     Dates: start: 20050410
  5. MYCOPHENOLATE MOFETIL [Suspect]
     Route: 048
     Dates: start: 20050517
  6. MYCOPHENOLATE MOFETIL [Suspect]
     Route: 048
     Dates: start: 20061117
  7. SIROLIMUS [Suspect]
     Route: 048
     Dates: start: 20050606, end: 20050606
  8. SIROLIMUS [Suspect]
     Route: 048
     Dates: start: 20050607
  9. SIROLIMUS [Suspect]
     Route: 048
     Dates: start: 20050901
  10. SIROLIMUS [Suspect]
     Route: 048
     Dates: start: 20051101
  11. TACROLIMUS [Suspect]
     Route: 048
     Dates: start: 20040516, end: 20040516
  12. TACROLIMUS [Suspect]
     Route: 048
     Dates: start: 20040517, end: 20040517
  13. TACROLIMUS [Suspect]
     Route: 048
     Dates: start: 20040518, end: 20040518
  14. TACROLIMUS [Suspect]
     Route: 048
     Dates: start: 20040519, end: 20040519
  15. TACROLIMUS [Suspect]
     Route: 048
     Dates: start: 20040520
  16. TACROLIMUS [Suspect]
     Route: 048
     Dates: start: 20040524, end: 20040524
  17. TACROLIMUS [Suspect]
     Route: 048
     Dates: start: 20040525
  18. TACROLIMUS [Suspect]
     Route: 048
     Dates: start: 20050410
  19. TACROLIMUS [Suspect]
     Route: 048
     Dates: start: 20050518
  20. TACROLIMUS [Suspect]
     Route: 048
     Dates: start: 20050606, end: 20050614
  21. PREDNISOLONE [Suspect]
     Route: 042
     Dates: start: 20040517, end: 20040517
  22. PREDNISOLONE [Suspect]
     Route: 042
     Dates: start: 20040518, end: 20040518
  23. PREDNISOLONE [Suspect]
     Route: 048
     Dates: start: 20040518, end: 20040518
  24. PREDNISOLONE [Suspect]
     Route: 048
     Dates: start: 20040519
  25. PREDNISOLONE [Suspect]
     Route: 048
     Dates: start: 20040601
  26. PREDNISOLONE [Suspect]
     Route: 048
     Dates: start: 20040719
  27. PREDNISOLONE [Suspect]
     Route: 048
     Dates: start: 20040819
  28. PREDNISOLONE [Suspect]
     Route: 048
     Dates: start: 20040919
  29. PREDNISOLONE [Suspect]
     Route: 048
     Dates: start: 20041019
  30. PREDNISOLONE [Suspect]
     Route: 048
     Dates: start: 20050410
  31. PREDNISOLONE [Suspect]
     Route: 048
     Dates: start: 20050518
  32. DELIX [Concomitant]
     Route: 048
     Dates: start: 20040525
  33. METOPROLOL SUCCINATE [Concomitant]
     Route: 048
     Dates: start: 20040318
  34. METOPROLOL SUCCINATE [Concomitant]
     Route: 048
     Dates: start: 20040602
  35. METOPROLOL SUCCINATE [Concomitant]
     Route: 048
     Dates: start: 20040708, end: 20050517
  36. AMLODIPINE [Concomitant]
     Route: 048
     Dates: start: 20040525
  37. VIGANTOLETTEN [Concomitant]
  38. AMPHOTERICIN B [Concomitant]
     Dosage: ROUTE: TO
     Route: 050
     Dates: start: 20040602, end: 20040812
  39. FLUVASTATIN [Concomitant]
     Route: 048
     Dates: start: 20040518, end: 20040929
  40. FLUVASTATIN [Concomitant]
     Route: 048
     Dates: start: 20050413
  41. KEPINOL [Concomitant]
     Dosage: ONSE DATE REPORTED AS 1
     Route: 048
     Dates: end: 20050215
  42. RISEDRONATE SODIUM [Concomitant]
     Dosage: DRUG: RISEDRONAT NATRIUM
     Route: 048
     Dates: start: 20040518, end: 20050215
  43. AMPICILLIN AND SULBACTAM [Concomitant]
     Route: 048
     Dates: start: 20040517, end: 20040526
  44. AMPICILLIN AND SULBACTAM [Concomitant]
     Route: 048
     Dates: start: 20050422, end: 20050427
  45. AMPICILLIN AND SULBACTAM [Concomitant]
     Route: 042
     Dates: start: 20040517, end: 20040517

REACTIONS (2)
  - PYELONEPHRITIS ACUTE [None]
  - RENAL CELL CARCINOMA [None]
